FAERS Safety Report 8519528 (Version 6)
Quarter: 2015Q4

REPORT INFORMATION
  Report Type: Report from Study
  Country: DE (occurrence: DE)
  Receive Date: 20120418
  Receipt Date: 20151103
  Transmission Date: 20160305
  Serious: Yes (Hospitalization)
  Sender: FDA-Public Use
  Company Number: PHHO2012DE005895

PATIENT
  Age: 75 Year
  Sex: Female
  Weight: 93 kg

DRUGS (20)
  1. ENALAPRIL [Suspect]
     Active Substance: ENALAPRIL
     Dosage: LEVEL 2
     Route: 048
     Dates: start: 20100511
  2. POLYHEXANIDE [Concomitant]
     Indication: PROPHYLAXIS
     Dosage: UNK
     Route: 065
     Dates: start: 20110527
  3. VIANI [Concomitant]
     Active Substance: FLUTICASONE PROPIONATE\SALMETEROL XINAFOATE
     Indication: CHRONIC OBSTRUCTIVE PULMONARY DISEASE
     Dosage: UNK
     Route: 055
     Dates: start: 20100301
  4. ALISKIREN [Suspect]
     Active Substance: ALISKIREN
     Dosage: NO TREATMENT
     Route: 065
     Dates: start: 20110824
  5. ENALAPRIL [Suspect]
     Active Substance: ENALAPRIL
     Dosage: LEVEL 2
     Route: 048
     Dates: start: 20111029
  6. NOVAMINSULFON [Concomitant]
     Active Substance: METAMIZOLE
     Indication: POLYNEUROPATHY
     Dosage: UNK
     Route: 065
     Dates: start: 20100301
  7. PANTOZOL [Concomitant]
     Active Substance: PANTOPRAZOLE SODIUM
     Indication: PROPHYLAXIS
     Dosage: UNK
     Route: 065
     Dates: start: 20100824
  8. ALISKIREN [Suspect]
     Active Substance: ALISKIREN
     Indication: CARDIAC FAILURE
     Dosage: LEVEL 1
     Route: 048
     Dates: start: 20100429
  9. ALISKIREN [Suspect]
     Active Substance: ALISKIREN
     Dosage: LEVEL 2
     Route: 048
     Dates: start: 20100511
  10. ALISKIREN [Suspect]
     Active Substance: ALISKIREN
     Dosage: LEVEL 2
     Route: 048
     Dates: start: 20111029
  11. ENALAPRIL [Suspect]
     Active Substance: ENALAPRIL
     Indication: CARDIAC FAILURE
     Dosage: LEVEL 1
     Route: 048
     Dates: start: 20100429
  12. ENALAPRIL [Suspect]
     Active Substance: ENALAPRIL
     Dosage: NO TREATMENT
     Dates: start: 20110824
  13. MCP [Concomitant]
     Active Substance: METOCLOPRAMIDE HYDROCHLORIDE
     Indication: GASTROENTERITIS
     Dosage: UNK
     Route: 065
     Dates: start: 20101129
  14. ALISKIREN [Suspect]
     Active Substance: ALISKIREN
     Dosage: UNK
     Route: 048
     Dates: start: 20110914
  15. ENALAPRIL [Suspect]
     Active Substance: ENALAPRIL
     Dosage: UNK
     Route: 048
     Dates: start: 20110914
  16. SPIRIVA [Concomitant]
     Active Substance: TIOTROPIUM BROMIDE MONOHYDRATE
     Indication: CHRONIC OBSTRUCTIVE PULMONARY DISEASE
     Dosage: 18 UG, UNK
     Route: 065
     Dates: start: 20100301
  17. THIAMAZOLE [Concomitant]
     Active Substance: METHIMAZOLE
     Indication: PRODUCT USED FOR UNKNOWN INDICATION
     Dosage: 20 MG, UNK
     Route: 065
     Dates: start: 20110629
  18. LYRICA [Concomitant]
     Active Substance: PREGABALIN
     Indication: CARDIAC FAILURE CONGESTIVE
     Dosage: 1 TBI
     Route: 065
     Dates: start: 2005
  19. ALISKIREN [Suspect]
     Active Substance: ALISKIREN
     Dosage: LEVEL 1
     Route: 048
     Dates: start: 20111020
  20. ENALAPRIL [Suspect]
     Active Substance: ENALAPRIL
     Dosage: LEVEL 1
     Route: 048
     Dates: start: 20111020

REACTIONS (2)
  - Spinal column stenosis [Recovered/Resolved with Sequelae]
  - Myelopathy [Not Recovered/Not Resolved]

NARRATIVE: CASE EVENT DATE: 20120402
